FAERS Safety Report 25262228 (Version 2)
Quarter: 2025Q2

REPORT INFORMATION
  Report Type: Spontaneous
  Country: AU (occurrence: AU)
  Receive Date: 20250502
  Receipt Date: 20250512
  Transmission Date: 20250716
  Serious: Yes (Death, Other)
  Sender: ABBVIE
  Company Number: AU-ABBVIE-6256949

PATIENT
  Age: 12 Year
  Sex: Female

DRUGS (5)
  1. CARBIDOPA\LEVODOPA [Suspect]
     Active Substance: CARBIDOPA\LEVODOPA
     Indication: Neurotoxicity
     Route: 050
  2. CARBIDOPA\LEVODOPA [Suspect]
     Active Substance: CARBIDOPA\LEVODOPA
  3. ANAKINRA [Suspect]
     Active Substance: ANAKINRA
     Indication: Neurotoxicity
     Route: 065
  4. DASATINIB [Suspect]
     Active Substance: DASATINIB
     Indication: Neurotoxicity
     Route: 065
  5. HYDROCORTISONE [Suspect]
     Active Substance: HYDROCORTISONE
     Indication: Neurotoxicity
     Route: 037

REACTIONS (3)
  - Pneumonia aspiration [Fatal]
  - Therapeutic response decreased [Unknown]
  - B-cell aplasia [Unknown]
